APPROVED DRUG PRODUCT: OXYCODONE HYDROCHLORIDE
Active Ingredient: OXYCODONE HYDROCHLORIDE
Strength: 5MG
Dosage Form/Route: TABLET;ORAL
Application: A207418 | Product #003 | TE Code: AB
Applicant: ASCENT PHARMACEUTICALS INC
Approved: Nov 14, 2025 | RLD: No | RS: No | Type: RX